FAERS Safety Report 20726176 (Version 2)
Quarter: 2025Q3

REPORT INFORMATION
  Report Type: Report from Study
  Country: JP (occurrence: JP)
  Receive Date: 20220419
  Receipt Date: 20250915
  Transmission Date: 20251020
  Serious: No
  Sender: ALEXION PHARMACEUTICALS
  Company Number: 2022A151419

PATIENT
  Age: 46 Year
  Sex: Female
  Weight: 46 kg

DRUGS (9)
  1. ANIFROLUMAB [Suspect]
     Active Substance: ANIFROLUMAB
     Indication: Systemic lupus erythematosus
     Dates: start: 20220304, end: 20220304
  2. PREDNISOLONE [Suspect]
     Active Substance: PREDNISOLONE
     Indication: Systemic lupus erythematosus
  3. METHOTREXATE [Suspect]
     Active Substance: METHOTREXATE
     Indication: Systemic lupus erythematosus
  4. NEORAL [Suspect]
     Active Substance: CYCLOSPORINE
     Indication: Systemic lupus erythematosus
  5. Recombinant novel coronavirus vaccine (CHO cell) [Concomitant]
  6. Recombinant novel coronavirus vaccine (CHO cell) [Concomitant]
  7. ALFACALCIDOL [Concomitant]
     Active Substance: ALFACALCIDOL
     Indication: Osteoporosis
  8. ACETAMINOPHEN\TRAMADOL HYDROCHLORIDE [Concomitant]
     Active Substance: ACETAMINOPHEN\TRAMADOL HYDROCHLORIDE
     Indication: Systemic lupus erythematosus
  9. AMLODIPINE [Concomitant]
     Active Substance: AMLODIPINE BESYLATE
     Indication: Systemic lupus erythematosus

REACTIONS (1)
  - Cellulitis [Recovering/Resolving]

NARRATIVE: CASE EVENT DATE: 20220401
